FAERS Safety Report 7449592-9 (Version None)
Quarter: 2011Q2

REPORT INFORMATION
  Report Type: 
  Country: None (occurrence: None)
  Receive Date: 20110502
  Receipt Date: 20110414
  Transmission Date: 20111010
  Serious: Yes (Other)
  Sender: FDA-Public Use
  Company Number: US-BAYER-2010-004483

PATIENT
  Sex: Female

DRUGS (7)
  1. YAZ [Suspect]
     Indication: ENDOMETRIAL HYPERTROPHY
  2. YAZ [Suspect]
     Indication: PREMENSTRUAL SYNDROME
     Dosage: UNK
     Route: 048
     Dates: start: 20080213, end: 20081210
  3. YAZ [Suspect]
     Indication: DYSMENORRHOEA
  4. LEVOTHYROXINE SODIUM [Concomitant]
  5. YAZ [Suspect]
     Indication: MENSTRUATION IRREGULAR
  6. CARDIZEM CD [Concomitant]
  7. KLONOPIN [Concomitant]
     Indication: CONVULSION
     Dosage: UNK
     Dates: start: 19980101

REACTIONS (4)
  - PULMONARY EMBOLISM [None]
  - THROMBOSIS [None]
  - DEEP VEIN THROMBOSIS [None]
  - PAIN [None]
